FAERS Safety Report 8533064-4 (Version None)
Quarter: 2012Q3

REPORT INFORMATION
  Report Type: 
  Country: None (occurrence: None)
  Receive Date: 20120724
  Receipt Date: 20120630
  Transmission Date: 20120928
  Serious: No
  Sender: FDA-Public Use
  Company Number: US-ROXANE LABORATORIES, INC.-2012-RO-01289RO

PATIENT
  Sex: Female

DRUGS (1)
  1. LORAZEPAM [Suspect]
     Indication: ANXIETY
     Dosage: 1.5 MG
     Route: 048
     Dates: start: 20120516

REACTIONS (5)
  - DIPLOPIA [None]
  - ORAL DISCOMFORT [None]
  - DRUG INEFFECTIVE [None]
  - OROPHARYNGEAL PAIN [None]
  - WITHDRAWAL SYNDROME [None]
